FAERS Safety Report 10079227 (Version 1)
Quarter: 2014Q2

REPORT INFORMATION
  Report Type: Spontaneous
  Country: US (occurrence: US)
  Receive Date: 20140415
  Receipt Date: 20140415
  Transmission Date: 20141212
  Serious: No
  Sender: FDA-Public Use
  Company Number: US-TEVA-475600USA

PATIENT
  Age: 26 Year
  Sex: Female
  Weight: 65.83 kg

DRUGS (2)
  1. PARAGARD 380A [Suspect]
     Indication: CONTRACEPTION
     Route: 015
     Dates: start: 20140410
  2. VALTREX [Concomitant]
     Indication: HERPES VIRUS INFECTION

REACTIONS (2)
  - Dysmenorrhoea [Not Recovered/Not Resolved]
  - Vaginal haemorrhage [Not Recovered/Not Resolved]
